FAERS Safety Report 11033554 (Version 2)
Quarter: 2015Q2

REPORT INFORMATION
  Report Type: Report from Study
  Country: US (occurrence: US)
  Receive Date: 20150415
  Receipt Date: 20150605
  Transmission Date: 20150821
  Serious: Yes (Hospitalization)
  Sender: FDA-Public Use
  Company Number: US-ACTELION-A-US2015-116027

PATIENT
  Age: 71 Year
  Sex: Male

DRUGS (7)
  1. REMODULIN [Suspect]
     Active Substance: TREPROSTINIL
     Indication: PRODUCT USED FOR UNKNOWN INDICATION
     Dosage: 90 NG/KG, PER MIN
     Route: 065
     Dates: start: 2013
  2. TRACLEER [Suspect]
     Active Substance: BOSENTAN\BOSENTAN MONOHYDRATE
     Indication: PULMONARY ARTERIAL HYPERTENSION
     Dosage: 125 MG, BID
     Route: 048
     Dates: start: 201203
  3. FUROSEMIDE. [Concomitant]
     Active Substance: FUROSEMIDE
     Dosage: 40 MG, PRN
     Dates: start: 2010
  4. DILTIAZEM [Concomitant]
     Active Substance: DILTIAZEM
     Dosage: 180 MG, QD
     Dates: start: 2011
  5. VALSARTAN. [Concomitant]
     Active Substance: VALSARTAN
     Dosage: 160 MG, QD
     Dates: start: 2011
  6. SILDENAFIL. [Concomitant]
     Active Substance: SILDENAFIL
  7. POTASSIUM [Concomitant]
     Active Substance: POTASSIUM
     Dosage: 40 MCG, QD
     Dates: start: 2010

REACTIONS (6)
  - Confusional state [Unknown]
  - Dyspnoea [Unknown]
  - Total lung capacity decreased [Unknown]
  - Pulmonary arterial hypertension [Unknown]
  - Pain [Unknown]
  - Abasia [Unknown]

NARRATIVE: CASE EVENT DATE: 20150331
